FAERS Safety Report 9384274 (Version 1)
Quarter: 2013Q4

REPORT INFORMATION
  Report Type: Spontaneous
  Country: US (occurrence: None)
  Receive Date: 20130702
  Receipt Date: 20130702
  Transmission Date: 20140711
  Serious: Yes (Hospitalization)
  Sender: FDA-Public Use
  Company Number: None

PATIENT
  Age: 65 Year
  Sex: Female
  Weight: 64.05 kg

DRUGS (20)
  1. ALEMTUZUMAB [Suspect]
     Indication: MULTIPLE SCLEROSIS
     Dosage: DAY 1 TO 5 12 MG QD IV (041)
     Route: 042
     Dates: start: 20130610, end: 20130614
  2. SOLUMEDROL [Suspect]
     Dosage: DAY 1 TO 3 1 G QD IV (0410
     Route: 042
     Dates: start: 20130610, end: 20130612
  3. CRESTOR [Concomitant]
  4. DIAZEPAM [Concomitant]
  5. FISH OIL [Concomitant]
  6. GLUCOSAMINE CHONDROITIN [Concomitant]
  7. HCTZ [Concomitant]
  8. HYDROXYZINE [Concomitant]
  9. LISINOPRIL [Concomitant]
  10. MELOXICAM [Concomitant]
  11. MODAFINIL [Concomitant]
  12. NIACIN [Concomitant]
  13. NYSTATIN [Concomitant]
  14. OCUVITE [Concomitant]
  15. OXYBUTYNIN CHLORIDE [Concomitant]
  16. TIMOLOL [Concomitant]
  17. TRAMADOL [Concomitant]
  18. TRAVATAN [Concomitant]
  19. VENLAFAXINE ER [Concomitant]
  20. VITAMIN D [Concomitant]

REACTIONS (1)
  - Device related infection [None]
